FAERS Safety Report 10994707 (Version 1)
Quarter: 2015Q2

REPORT INFORMATION
  Report Type: Spontaneous
  Country: US (occurrence: US)
  Receive Date: 20150407
  Receipt Date: 20150407
  Transmission Date: 20150821
  Serious: Yes (Death, Other)
  Sender: FDA-Public Use
  Company Number: US-PFIZER INC-2015117149

PATIENT
  Age: 71 Year
  Sex: Male
  Weight: 70 kg

DRUGS (1)
  1. VIAGRA [Suspect]
     Active Substance: SILDENAFIL CITRATE
     Dosage: 100 MG, AS NEEDED

REACTIONS (2)
  - Chronic obstructive pulmonary disease [Fatal]
  - Respiratory failure [Fatal]
